FAERS Safety Report 19815618 (Version 1)
Quarter: 2021Q3

REPORT INFORMATION
  Report Type: Spontaneous
  Country: FR (occurrence: FR)
  Receive Date: 20210910
  Receipt Date: 20210910
  Transmission Date: 20211014
  Serious: Yes (Death)
  Sender: FDA-Public Use
  Company Number: FR-MYLANLABS-2021M1061257

PATIENT
  Age: 59 Year
  Sex: Male
  Weight: 83 kg

DRUGS (5)
  1. CILASTATINE [Suspect]
     Active Substance: CILASTATIN
     Indication: INFECTION
     Dosage: UNK
     Route: 041
     Dates: start: 20201205, end: 20201210
  2. IMIPENEM [Suspect]
     Active Substance: IMIPENEM
     Indication: INFECTION
     Dosage: UNK
     Route: 041
     Dates: start: 20201125, end: 20201201
  3. RAMIPRIL. [Suspect]
     Active Substance: RAMIPRIL
     Indication: HYPERTENSION
     Dosage: 5 MILLIGRAM, QD
     Route: 048
  4. AMIODARONE [Suspect]
     Active Substance: AMIODARONE
     Indication: ATRIAL FIBRILLATION
     Dosage: 200 MILLIGRAM, QD
     Route: 048
  5. FLUDARA [Suspect]
     Active Substance: FLUDARABINE PHOSPHATE
     Indication: CHEMOTHERAPY
     Dosage: 60 MILLIGRAM, QD
     Route: 041
     Dates: start: 20201110, end: 20201124

REACTIONS (1)
  - Eosinophilic pneumonia [Fatal]

NARRATIVE: CASE EVENT DATE: 202011
